FAERS Safety Report 8297855-X (Version None)
Quarter: 2012Q2

REPORT INFORMATION
  Report Type: 
  Country: None (occurrence: None)
  Receive Date: 20120419
  Receipt Date: 20120412
  Transmission Date: 20120825
  Serious: Yes (Other)
  Sender: FDA-Public Use
  Company Number: JP-VERTEX PHARMACEUTICALS INC.-AE-2012-003277

PATIENT
  Age: 58 Year
  Sex: Male

DRUGS (8)
  1. LOXONIN [Concomitant]
     Route: 048
  2. AMOBAN [Concomitant]
     Route: 048
  3. MUCOSTA [Concomitant]
     Route: 048
  4. PEGINTERFERON ALFA-2B [Concomitant]
     Indication: HEPATITIS C
     Route: 058
     Dates: start: 20120227
  5. URSO 250 [Concomitant]
     Route: 048
  6. TELAVIC (TELAPREVIR) [Suspect]
     Indication: HEPATITIS C
     Route: 048
     Dates: start: 20120227, end: 20120301
  7. REBETOL [Concomitant]
     Indication: HEPATITIS C
     Route: 048
     Dates: start: 20120227
  8. ALLOPURINOL [Concomitant]
     Route: 048

REACTIONS (4)
  - VOMITING [None]
  - NAUSEA [None]
  - ERYTHEMA [None]
  - PYREXIA [None]
